FAERS Safety Report 8477256-1 (Version None)
Quarter: 2012Q2

REPORT INFORMATION
  Report Type: 
  Country: None (occurrence: None)
  Receive Date: 20120622
  Receipt Date: 20120608
  Transmission Date: 20120825
  Serious: Yes (Other)
  Sender: FDA-Public Use
  Company Number: JPI-P-021970

PATIENT
  Age: 30 Year
  Sex: Female

DRUGS (2)
  1. XYREM [Suspect]
     Indication: CATAPLEXY
     Dosage: 4.5 GM (2.25 GM, 2 IN 1 D), ORAL
     Route: 048
     Dates: start: 20110330
  2. CLOBAZAM [Concomitant]

REACTIONS (6)
  - JOINT DISLOCATION [None]
  - STERILISATION [None]
  - JAW FRACTURE [None]
  - EXOSTOSIS [None]
  - SCAR [None]
  - ROAD TRAFFIC ACCIDENT [None]
